FAERS Safety Report 10160848 (Version 1)
Quarter: 2014Q2

REPORT INFORMATION
  Report Type: Spontaneous
  Country: CA (occurrence: CA)
  Receive Date: 20140508
  Receipt Date: 20140508
  Transmission Date: 20141212
  Serious: Yes (Hospitalization)
  Sender: FDA-Public Use
  Company Number: CA-B.I. PHARMACEUTICALS,INC./RIDGEFIELD-2014-BI-20140CN

PATIENT
  Age: 74 Year
  Sex: Male

DRUGS (5)
  1. SPIRIVA [Suspect]
     Indication: PRODUCT USED FOR UNKNOWN INDICATION
     Route: 065
  2. ADVAIR DISKUS [Suspect]
     Indication: PRODUCT USED FOR UNKNOWN INDICATION
     Route: 065
  3. DAXAS [Suspect]
     Indication: PRODUCT USED FOR UNKNOWN INDICATION
     Route: 065
  4. DAXAS [Suspect]
     Route: 065
  5. DAXAS [Suspect]
     Route: 065

REACTIONS (4)
  - Chronic obstructive pulmonary disease [Unknown]
  - Condition aggravated [Unknown]
  - Cough [Unknown]
  - Weight decreased [Unknown]
